FAERS Safety Report 4432540-3 (Version None)
Quarter: 2004Q3

REPORT INFORMATION
  Report Type: 
  Country: None (occurrence: None)
  Receive Date: 20040817
  Receipt Date: 20040806
  Transmission Date: 20050211
  Serious: Yes (Other)
  Sender: FDA-Public Use
  Company Number: HQWYE621828APR04

PATIENT
  Age: 47 Year
  Sex: Male
  Weight: 80 kg

DRUGS (3)
  1. REFACTO [Suspect]
     Indication: FACTOR VIII DEFICIENCY
     Dosage: 2000 IU BI WEEKLY ROUTINE PROPHYLAXIS, 1.1 INTRAVENOUS
     Route: 042
     Dates: start: 20030617
  2. REFACTO [Suspect]
  3. ADVIL [Concomitant]

REACTIONS (4)
  - ACTIVATED PARTIAL THROMBOPLASTIN TIME PROLONGED [None]
  - ANTI FACTOR VIII ANTIBODY POSITIVE [None]
  - COAGULATION FACTOR VIII LEVEL DECREASED [None]
  - HAEMORRHAGE [None]
